FAERS Safety Report 20801216 (Version 1)
Quarter: 2022Q2

REPORT INFORMATION
  Report Type: Spontaneous
  Country: TH (occurrence: TH)
  Receive Date: 20220509
  Receipt Date: 20220509
  Transmission Date: 20220720
  Serious: Yes (Death, Hospitalization, Other)
  Sender: FDA-Public Use
  Company Number: TH-STRIDES ARCOLAB LIMITED-2022SP004968

PATIENT
  Age: 64 Year
  Sex: Female

DRUGS (6)
  1. HYDROCORTISONE [Suspect]
     Active Substance: HYDROCORTISONE
     Indication: Septic shock
     Dosage: UNK
     Route: 065
  2. HYDROCORTISONE [Suspect]
     Active Substance: HYDROCORTISONE
     Dosage: 200 MILLIGRAM PER DAY (FOR 10 DAYS FOR SEPTIC SHOCK, FOLLOWED BY TAPERING DOSE TO COMPLETE 15 DAYS)
     Route: 065
  3. HYDROCORTISONE [Suspect]
     Active Substance: HYDROCORTISONE
     Dosage: UNK (TAPERING DOSE)
     Route: 065
  4. CAPECITABINE [Suspect]
     Active Substance: CAPECITABINE
     Indication: Adenocarcinoma of colon
     Dosage: UNK, CYCLICAL (SHE COMPLETED THE FOURTH CYCLE OF CAPECITABINE 2 WEEKS EARLIER)
     Route: 065
  5. OXALIPLATIN [Suspect]
     Active Substance: OXALIPLATIN
     Indication: Adenocarcinoma of colon
     Dosage: UNK, CYCLICAL (SHE COMPLETED THE FOURTH CYCLE OF OXALIPLATIN 2 WEEKS EARLIER)
     Route: 065
  6. MEROPENEM [Concomitant]
     Active Substance: MEROPENEM
     Indication: Antibiotic therapy
     Dosage: UNK
     Route: 042

REACTIONS (5)
  - Multiple organ dysfunction syndrome [Fatal]
  - Disseminated mucormycosis [Unknown]
  - Acinetobacter infection [Recovered/Resolved]
  - Drug ineffective for unapproved indication [Fatal]
  - Klebsiella infection [Unknown]
